FAERS Safety Report 7231065-X (Version None)
Quarter: 2011Q1

REPORT INFORMATION
  Report Type: 
  Country: None (occurrence: None)
  Receive Date: 20110118
  Receipt Date: 20101231
  Transmission Date: 20110831
  Serious: Yes (Death, Hospitalization, Other)
  Sender: FDA-Public Use
  Company Number: FR-PFIZER INC-2010181794

PATIENT
  Age: 84 Year
  Sex: Female

DRUGS (9)
  1. FORLAX [Suspect]
     Dosage: 10 G, 2X/DAY
     Route: 048
  2. DEROXAT [Suspect]
     Dosage: 10 MG, 1X/DAY
     Route: 048
  3. DIFFU K [Suspect]
     Dosage: 1 DF, 2X/DAY
     Route: 048
     Dates: end: 20101115
  4. LEVOTHYROX [Suspect]
     Dosage: 75 UG, 1X/DAY
     Route: 048
  5. NEXIUM [Suspect]
     Dosage: 20 MG, 1X/DAY
     Route: 048
  6. CORDARONE [Suspect]
     Dosage: 200 MG, 1X/DAY
     Route: 048
     Dates: end: 20101115
  7. PRADAXA [Suspect]
     Indication: ARRHYTHMIA
     Dosage: 75 MG, 2X/DAY
     Route: 048
     Dates: start: 20090101, end: 20101115
  8. XANAX [Suspect]
     Dosage: 0.25 MG, 1X/DAY
     Route: 048
  9. TRIATEC [Suspect]
     Dosage: 5 MG, 2X/DAY
     Route: 048

REACTIONS (14)
  - RENAL FAILURE ACUTE [None]
  - BRADYCARDIA [None]
  - HYPERLACTACIDAEMIA [None]
  - INTESTINAL ISCHAEMIA [None]
  - ATRIOVENTRICULAR BLOCK COMPLETE [None]
  - FAECAL VOMITING [None]
  - OVERDOSE [None]
  - MYOCARDIAL ISCHAEMIA [None]
  - METABOLIC ACIDOSIS [None]
  - GASTROINTESTINAL HAEMORRHAGE [None]
  - CARDIO-RESPIRATORY ARREST [None]
  - RECTAL HAEMORRHAGE [None]
  - PELVIC PAIN [None]
  - HAEMORRHOIDS [None]
